FAERS Safety Report 4785386-0 (Version None)
Quarter: 2005Q4

REPORT INFORMATION
  Report Type: 
  Country: None (occurrence: None)
  Receive Date: 20051003
  Receipt Date: 20050921
  Transmission Date: 20060501
  Serious: Yes (Hospitalization)
  Sender: FDA-Public Use
  Company Number: FR-BRISTOL-MYERS SQUIBB COMPANY-13120365

PATIENT
  Age: 82 Year
  Sex: Female

DRUGS (1)
  1. FUNGIZONE [Suspect]
     Indication: SYSTEMIC CANDIDA
     Route: 042
     Dates: start: 20050830, end: 20050831

REACTIONS (4)
  - BRONCHOSPASM [None]
  - HYPOXIA [None]
  - PULMONARY OEDEMA [None]
  - RESPIRATORY DISTRESS [None]
